FAERS Safety Report 16082783 (Version 3)
Quarter: 2021Q4

REPORT INFORMATION
  Report Type: Other
  Country: DE (occurrence: None)
  Receive Date: 20190318
  Receipt Date: 20211203
  Transmission Date: 20220303
  Serious: Yes (Other)
  Sender: FDA-Public Use
  Company Number: DE-ROCHE-2279506

PATIENT
  Age: 58 Year
  Sex: Female
  Weight: 107 kg

DRUGS (12)
  1. OCRELIZUMAB [Suspect]
     Active Substance: OCRELIZUMAB
     Indication: Relapsing multiple sclerosis
     Route: 042
     Dates: start: 20180621
  2. OCRELIZUMAB [Suspect]
     Active Substance: OCRELIZUMAB
     Dosage: LAST DOSE
     Route: 042
     Dates: start: 20180705
  3. OEKOLP [Concomitant]
     Indication: Prophylaxis
     Dosage: ONGOING
     Route: 067
  4. EUTHYROX [Concomitant]
     Active Substance: LEVOTHYROXINE SODIUM
     Indication: Hypothyroidism
     Dosage: ONGOING
     Route: 048
  5. PANTOPRAZOLE SODIUM [Concomitant]
     Active Substance: PANTOPRAZOLE SODIUM
     Indication: Prophylaxis
     Dosage: ONGOING
     Route: 048
  6. GLIMEPIRIDE [Concomitant]
     Active Substance: GLIMEPIRIDE
     Indication: Diabetes mellitus
     Dosage: ONGOING
     Route: 048
  7. ATORVASTATIN [Concomitant]
     Active Substance: ATORVASTATIN
     Indication: Metabolic disorder
     Dosage: ONGOING
     Route: 048
  8. RAMIPRIL [Concomitant]
     Active Substance: RAMIPRIL
     Indication: Hypertension
     Dosage: ONGOING
     Route: 048
  9. CHOLECALCIFEROL [Concomitant]
     Active Substance: CHOLECALCIFEROL
     Indication: Prophylaxis
     Dosage: ONGOING
     Route: 048
  10. LERCANIDIPINE [Concomitant]
     Active Substance: LERCANIDIPINE
     Indication: Hypertension
     Dosage: ONGOING
     Route: 048
  11. SITAGLIPTIN PHOSPHATE [Concomitant]
     Active Substance: SITAGLIPTIN PHOSPHATE
     Indication: Diabetes mellitus
     Dosage: ONGOING
     Route: 048
  12. DALFAMPRIDINE [Concomitant]
     Active Substance: DALFAMPRIDINE
     Dosage: ONGOING
     Route: 048
     Dates: start: 20160414

REACTIONS (1)
  - Abscess limb [Recovered/Resolved]

NARRATIVE: CASE EVENT DATE: 20181222
